FAERS Safety Report 9103871 (Version 6)
Quarter: 2014Q4

REPORT INFORMATION
  Report Type: Report from Study
  Country: US (occurrence: US)
  Receive Date: 20130219
  Receipt Date: 20141023
  Transmission Date: 20150529
  Serious: Yes (Life-Threatening, Hospitalization)
  Sender: FDA-Public Use
  Company Number: US-JNJFOC-20130207209

PATIENT
  Age: 79 Year
  Sex: Female
  Weight: 83 kg

DRUGS (9)
  1. ROSUVASTATIN [Concomitant]
     Active Substance: ROSUVASTATIN
     Route: 065
  2. ALLOPURINOL. [Concomitant]
     Active Substance: ALLOPURINOL
     Route: 065
  3. SITAGLIPTIN [Concomitant]
     Active Substance: SITAGLIPTIN
     Route: 065
  4. CARVEDILOL. [Concomitant]
     Active Substance: CARVEDILOL
     Route: 065
  5. GLIPIZIDE. [Concomitant]
     Active Substance: GLIPIZIDE
     Route: 065
  6. APAP [Suspect]
     Active Substance: ACETAMINOPHEN
     Route: 048
  7. APAP [Suspect]
     Active Substance: ACETAMINOPHEN
     Indication: PAIN
     Dosage: 650MG, APPROXIMATELY 100 TABLETS
     Route: 048
     Dates: start: 201302
  8. GABAPENTIN. [Concomitant]
     Active Substance: GABAPENTIN
     Route: 065
  9. METFORMIN [Concomitant]
     Active Substance: METFORMIN HYDROCHLORIDE
     Route: 065

REACTIONS (9)
  - Acute respiratory failure [Recovered/Resolved]
  - Acute kidney injury [Unknown]
  - Blood lactic acid increased [Recovered/Resolved]
  - Aspartate aminotransferase increased [Recovered/Resolved]
  - Metabolic acidosis [Recovered/Resolved]
  - Overdose [Recovered/Resolved]
  - Asthenia [Recovered/Resolved]
  - Alanine aminotransferase increased [Recovered/Resolved]
  - Prothrombin time prolonged [Recovered/Resolved]

NARRATIVE: CASE EVENT DATE: 201302
